FAERS Safety Report 11504749 (Version 2)
Quarter: 2015Q4

REPORT INFORMATION
  Report Type: Report from Study
  Country: US (occurrence: US)
  Receive Date: 20150915
  Receipt Date: 20151125
  Transmission Date: 20160304
  Serious: No
  Sender: FDA-Public Use
  Company Number: US-AMGEN-USASP2015094072

PATIENT
  Age: 60 Year
  Sex: Female

DRUGS (1)
  1. ENBREL [Suspect]
     Active Substance: ETANERCEPT
     Indication: RHEUMATOID ARTHRITIS
     Dosage: UNK MG, QWK (1 WEEKLY)
     Route: 065
     Dates: start: 201507, end: 201511

REACTIONS (7)
  - Musculoskeletal stiffness [Unknown]
  - Arthralgia [Unknown]
  - Joint stiffness [Unknown]
  - Mobility decreased [Unknown]
  - Pain in extremity [Unknown]
  - No therapeutic response [Unknown]
  - Joint swelling [Unknown]

NARRATIVE: CASE EVENT DATE: 2015
